FAERS Safety Report 14416030 (Version 10)
Quarter: 2020Q1

REPORT INFORMATION
  Report Type: Report from Study
  Country: GB (occurrence: GB)
  Receive Date: 20180122
  Receipt Date: 20200326
  Transmission Date: 20200409
  Serious: Yes (Hospitalization, Other)
  Sender: FDA-Public Use
  Company Number: GB-BRISTOL-MYERS SQUIBB COMPANY-BMS-2016-025792

PATIENT
  Sex: Female

DRUGS (2)
  1. ABATACEPT [Suspect]
     Active Substance: ABATACEPT
     Indication: PRODUCT USED FOR UNKNOWN INDICATION
     Dosage: 125 MG, Q2WK
     Route: 058
     Dates: start: 2014
  2. ABATACEPT [Suspect]
     Active Substance: ABATACEPT
     Indication: RHEUMATOID ARTHRITIS
     Dosage: 125 MG, Q2WK
     Route: 058
     Dates: start: 20140723

REACTIONS (10)
  - Memory impairment [Unknown]
  - Off label use [Unknown]
  - Infected bite [Unknown]
  - Malaise [Unknown]
  - Pilonidal cyst [Unknown]
  - Infection [Unknown]
  - Abscess [Unknown]
  - Product dose omission [Unknown]
  - Pain [Unknown]
  - Rheumatoid arthritis [Unknown]
